FAERS Safety Report 24004762 (Version 1)
Quarter: 2024Q2

REPORT INFORMATION
  Report Type: Spontaneous
  Country: US (occurrence: US)
  Receive Date: 20240624
  Receipt Date: 20240624
  Transmission Date: 20240716
  Serious: No
  Sender: FDA-Public Use
  Company Number: US-ROCHE-10000002779

PATIENT
  Age: 71 Year
  Sex: Male
  Weight: 89.35 kg

DRUGS (2)
  1. CELLCEPT [Suspect]
     Active Substance: MYCOPHENOLATE MOFETIL
     Indication: Product used for unknown indication
     Dosage: REPORTER #1 STATED THE PATIENT TAKES TWO TABLETS TWICE A DAY AND ONGOING
     Route: 048
  2. KRYSTEXXA [Concomitant]
     Active Substance: PEGLOTICASE
     Indication: Gout
     Dosage: ONGOING

REACTIONS (2)
  - Dysuria [Not Recovered/Not Resolved]
  - Off label use [Unknown]

NARRATIVE: CASE EVENT DATE: 20240101
